FAERS Safety Report 24569831 (Version 1)
Quarter: 2024Q4

REPORT INFORMATION
  Report Type: Spontaneous
  Country: US (occurrence: None)
  Receive Date: 20241031
  Receipt Date: 20241031
  Transmission Date: 20250115
  Serious: Yes (Disabling)
  Sender: Public
  Company Number: None

PATIENT
  Age: 36 Year
  Sex: Male
  Weight: 74.25 kg

DRUGS (12)
  1. CEFDINIR [Suspect]
     Active Substance: CEFDINIR
     Indication: Upper-airway cough syndrome
     Dosage: FREQUENCY : EVERY 12 HOURS;?
     Route: 048
     Dates: start: 20210711, end: 20210715
  2. LINZESS [Suspect]
     Active Substance: LINACLOTIDE
  3. B- complex vitamin [Concomitant]
  4. C [Concomitant]
  5. D [Concomitant]
  6. POTASSIUM [Concomitant]
     Active Substance: POTASSIUM
  7. MAGNESIUM [Concomitant]
     Active Substance: MAGNESIUM
  8. ACIDOPHILUS [Concomitant]
     Active Substance: LACTOBACILLUS ACIDOPHILUS
  9. kefir [Concomitant]
  10. DIETARY SUPPLEMENT [Concomitant]
     Active Substance: DIETARY SUPPLEMENT
  11. RIFAXIMIN [Concomitant]
     Active Substance: RIFAXIMIN
  12. NEOMYCIN [Concomitant]
     Active Substance: NEOMYCIN

REACTIONS (7)
  - Constipation [None]
  - Ileus paralytic [None]
  - Gas poisoning [None]
  - Cardiac disorder [None]
  - Nervous system disorder [None]
  - Gastrointestinal microorganism overgrowth [None]
  - Physical product label issue [None]

NARRATIVE: CASE EVENT DATE: 20210715
